FAERS Safety Report 4731459-8 (Version None)
Quarter: 2005Q3

REPORT INFORMATION
  Report Type: 
  Country: None (occurrence: None)
  Receive Date: 20050719
  Receipt Date: 20040604
  Transmission Date: 20060218
  Serious: Yes (Hospitalization)
  Sender: FDA-Public Use
  Company Number: 199320

PATIENT
  Age: 33 Year
  Sex: Female
  Weight: 72.1219 kg

DRUGS (3)
  1. AVONEX [Suspect]
     Indication: MULTIPLE SCLEROSIS
     Dosage: 30 UG;QW;IM
     Route: 030
     Dates: start: 20010101, end: 20030201
  2. BIRTH CONTROL MEDICATION (NOS) [Concomitant]
  3. CELEXA [Concomitant]

REACTIONS (5)
  - ANXIETY [None]
  - COGNITIVE DISORDER [None]
  - FEAR [None]
  - INSOMNIA [None]
  - MULTIPLE SCLEROSIS RELAPSE [None]
